FAERS Safety Report 7547155-8 (Version None)
Quarter: 2011Q2

REPORT INFORMATION
  Report Type: 
  Country: None (occurrence: None)
  Receive Date: 20110614
  Receipt Date: 20110603
  Transmission Date: 20111010
  Serious: Yes (Other)
  Sender: FDA-Public Use
  Company Number: US-BAYER-2011-017887

PATIENT
  Sex: Female

DRUGS (1)
  1. MIRENA [Suspect]

REACTIONS (4)
  - PREGNANCY WITH CONTRACEPTIVE DEVICE [None]
  - DEVICE DISLOCATION [None]
  - DYSURIA [None]
  - ABDOMINAL PAIN [None]
